FAERS Safety Report 4668495-6 (Version None)
Quarter: 2005Q2

REPORT INFORMATION
  Report Type: 
  Country: None (occurrence: None)
  Receive Date: 20050523
  Receipt Date: 20050513
  Transmission Date: 20051028
  Serious: Yes (Life-Threatening, Hospitalization)
  Sender: FDA-Public Use
  Company Number: JP-NOVOPROD-244143

PATIENT
  Age: 19 Year
  Sex: Female
  Weight: 49 kg

DRUGS (4)
  1. NORDITROPIN SIMPLEXX [Suspect]
     Indication: GROWTH RETARDATION
     Dates: start: 19980928, end: 20030221
  2. NORLUTEN [Concomitant]
     Route: 048
  3. PREMARIN [Concomitant]
     Route: 048
     Dates: start: 20010203
  4. DESMOPRESSIN ACETATE [Concomitant]
     Dates: start: 19951201

REACTIONS (2)
  - BRAIN NEOPLASM [None]
  - DISEASE RECURRENCE [None]
